FAERS Safety Report 24066686 (Version 3)
Quarter: 2024Q3

REPORT INFORMATION
  Report Type: Spontaneous
  Country: IN (occurrence: IN)
  Receive Date: 20240709
  Receipt Date: 20240723
  Transmission Date: 20241017
  Serious: Yes (Hospitalization)
  Sender: ROCHE
  Company Number: IN-ROCHE-10000012789

PATIENT
  Age: 33 Year
  Sex: Female

DRUGS (10)
  1. ACTEMRA [Suspect]
     Active Substance: TOCILIZUMAB
     Indication: Rheumatoid arthritis
     Route: 042
  2. Mycotero [Concomitant]
  3. PREDNISOLONE [Concomitant]
     Active Substance: PREDNISOLONE
  4. TOPCID [Concomitant]
  5. EUGLIM [Concomitant]
  6. TENLIMAC [Concomitant]
  7. MELMET [Concomitant]
  8. METHOTREXATE SODIUM [Concomitant]
     Active Substance: METHOTREXATE SODIUM
  9. FOLVITE [Concomitant]
     Active Substance: FOLIC ACID
  10. AMLODIPINE BESYLATE [Concomitant]
     Active Substance: AMLODIPINE BESYLATE

REACTIONS (1)
  - Takayasu^s arteritis [Unknown]

NARRATIVE: CASE EVENT DATE: 20240605
